FAERS Safety Report 19546411 (Version 7)
Quarter: 2022Q3

REPORT INFORMATION
  Report Type: Spontaneous
  Country: DE (occurrence: DE)
  Receive Date: 20210714
  Receipt Date: 20220809
  Transmission Date: 20221026
  Serious: Yes (Hospitalization, Other)
  Sender: FDA-Public Use
  Company Number: DE-MYLANLABS-2021M1039397

PATIENT
  Sex: Male
  Weight: 80 kg

DRUGS (100)
  1. ALLOPURINOL [Suspect]
     Active Substance: ALLOPURINOL
     Indication: Product used for unknown indication
     Dosage: UNK, ONCE A DAY
     Route: 065
     Dates: start: 20190910, end: 20190914
  2. ALLOPURINOL [Suspect]
     Active Substance: ALLOPURINOL
     Dosage: UNK, ONCE A DAY
     Route: 065
     Dates: start: 20190915, end: 20190916
  3. ALLOPURINOL [Suspect]
     Active Substance: ALLOPURINOL
     Dosage: UNK, ONCE A DAY
     Route: 065
     Dates: start: 20190917, end: 20190919
  4. ALLOPURINOL [Suspect]
     Active Substance: ALLOPURINOL
     Dosage: UNK, TWO TIMES A DAY
     Route: 065
     Dates: start: 20201017
  5. ALLOPURINOL [Suspect]
     Active Substance: ALLOPURINOL
     Dosage: UNK, TWO TIMES A DAY
     Route: 065
     Dates: start: 20201018
  6. ALLOPURINOL [Suspect]
     Active Substance: ALLOPURINOL
     Dosage: UNK, TWO TIMES A DAY
     Route: 065
     Dates: start: 20201016
  7. ALLOPURINOL [Suspect]
     Active Substance: ALLOPURINOL
     Dosage: UNK, TWO TIMES A DAY
     Route: 065
     Dates: start: 20201019
  8. ALLOPURINOL [Suspect]
     Active Substance: ALLOPURINOL
     Dosage: UNK, TWO TIMES A DAY
     Route: 065
     Dates: start: 20201020
  9. ALLOPURINOL [Suspect]
     Active Substance: ALLOPURINOL
     Dosage: UNK, ONCE A DAY
     Route: 065
     Dates: start: 20180102, end: 20180118
  10. ALLOPURINOL [Suspect]
     Active Substance: ALLOPURINOL
     Dosage: UNK, TWO TIMES A DAY
     Route: 065
     Dates: start: 20201021
  11. AMLODIPINE [Suspect]
     Active Substance: AMLODIPINE BESYLATE
     Indication: Product used for unknown indication
     Dosage: UNK, ONCE A DAY BID (1-0-1) PAUSE
     Route: 065
     Dates: start: 20180102, end: 20180110
  12. AMLODIPINE [Suspect]
     Active Substance: AMLODIPINE BESYLATE
     Dosage: UNK, ONCE A DAY (1/2-0-1 )
     Route: 065
     Dates: start: 20190910, end: 20190916
  13. AMLODIPINE [Suspect]
     Active Substance: AMLODIPINE BESYLATE
     Dosage: UNK, ONCE A DAY (1/2-0-1 )
     Route: 065
     Dates: start: 20190917, end: 20190919
  14. ATORVASTATIN [Suspect]
     Active Substance: ATORVASTATIN
     Indication: Product used for unknown indication
     Dosage: UNK, ONCE A DAY
     Route: 065
     Dates: start: 20201017
  15. ATORVASTATIN [Suspect]
     Active Substance: ATORVASTATIN
     Dosage: UNK, ONCE A DAY
     Route: 065
     Dates: start: 20180102, end: 20180117
  16. ATORVASTATIN [Suspect]
     Active Substance: ATORVASTATIN
     Dosage: UNK, ONCE A DAY
     Route: 065
     Dates: start: 20201021
  17. ATORVASTATIN [Suspect]
     Active Substance: ATORVASTATIN
     Dosage: UNK, ONCE A DAY
     Route: 065
     Dates: start: 20201016
  18. ATORVASTATIN [Suspect]
     Active Substance: ATORVASTATIN
     Dosage: UNK, ONCE A DAY
     Route: 065
     Dates: start: 20201020
  19. ATORVASTATIN [Suspect]
     Active Substance: ATORVASTATIN
     Dosage: UNK, ONCE A DAY
     Route: 065
     Dates: start: 20201019
  20. ATORVASTATIN [Suspect]
     Active Substance: ATORVASTATIN
     Dosage: UNK, ONCE A DAY
     Route: 065
     Dates: start: 20201018
  21. BISOPROLOL FUMARATE [Suspect]
     Active Substance: BISOPROLOL FUMARATE
     Indication: Product used for unknown indication
     Dosage: UNK, ONCE A DAY
     Route: 065
     Dates: start: 20201021
  22. BISOPROLOL FUMARATE [Suspect]
     Active Substance: BISOPROLOL FUMARATE
     Dosage: UNK, ONCE A DAY
     Route: 065
     Dates: start: 20201020
  23. BISOPROLOL FUMARATE [Suspect]
     Active Substance: BISOPROLOL FUMARATE
     Dosage: UNK, ONCE A DAY
     Route: 065
     Dates: start: 20201017
  24. BISOPROLOL FUMARATE [Suspect]
     Active Substance: BISOPROLOL FUMARATE
     Dosage: UNK, ONCE A DAY
     Route: 065
     Dates: start: 20201019
  25. BISOPROLOL FUMARATE [Suspect]
     Active Substance: BISOPROLOL FUMARATE
     Dosage: UNK, TWO TIMES A DAY
     Route: 065
     Dates: start: 20180102, end: 20180118
  26. BISOPROLOL FUMARATE [Suspect]
     Active Substance: BISOPROLOL FUMARATE
     Dosage: UNK, ONCE A DAY
     Route: 065
     Dates: start: 20201016
  27. BISOPROLOL FUMARATE [Suspect]
     Active Substance: BISOPROLOL FUMARATE
     Dosage: UNK, ONCE A DAY
     Route: 065
     Dates: start: 20201018
  28. CETIRIZINE [Suspect]
     Active Substance: CETIRIZINE HYDROCHLORIDE
     Indication: Product used for unknown indication
     Dosage: UNK, ONCE A DAY
     Route: 065
     Dates: start: 20201018
  29. CETIRIZINE [Suspect]
     Active Substance: CETIRIZINE HYDROCHLORIDE
     Dosage: UNK, ONCE A DAY
     Route: 065
     Dates: start: 20201017
  30. CETIRIZINE [Suspect]
     Active Substance: CETIRIZINE HYDROCHLORIDE
     Dosage: UNK, ONCE A DAY
     Route: 065
     Dates: start: 20201019
  31. CETIRIZINE [Suspect]
     Active Substance: CETIRIZINE HYDROCHLORIDE
     Dosage: UNK, ONCE A DAY
     Route: 065
     Dates: start: 20201016
  32. CETIRIZINE [Suspect]
     Active Substance: CETIRIZINE HYDROCHLORIDE
     Dosage: UNK, ONCE A DAY
     Route: 065
     Dates: start: 20201020
  33. CETIRIZINE [Suspect]
     Active Substance: CETIRIZINE HYDROCHLORIDE
     Dosage: UNK, ONCE A DAY
     Route: 065
     Dates: start: 20201021
  34. PANTOPRAZOLE SODIUM [Suspect]
     Active Substance: PANTOPRAZOLE SODIUM
     Indication: Product used for unknown indication
     Dosage: UNK, ONCE A DAY (40))
     Route: 065
     Dates: start: 20180110, end: 20180117
  35. PANTOPRAZOLE SODIUM [Suspect]
     Active Substance: PANTOPRAZOLE SODIUM
     Dosage: UNK, ONCE A DAY
     Route: 065
     Dates: start: 20190918, end: 20190919
  36. PANTOPRAZOLE SODIUM [Suspect]
     Active Substance: PANTOPRAZOLE SODIUM
     Dosage: UNK, ONCE A DAY
     Route: 065
     Dates: start: 20201016
  37. PANTOPRAZOLE SODIUM [Suspect]
     Active Substance: PANTOPRAZOLE SODIUM
     Dosage: UNK, ONCE A DAY
     Route: 065
     Dates: start: 20201017
  38. PANTOPRAZOLE SODIUM [Suspect]
     Active Substance: PANTOPRAZOLE SODIUM
     Dosage: UNK, ONCE A DAY
     Route: 065
     Dates: start: 20201018
  39. PANTOPRAZOLE SODIUM [Suspect]
     Active Substance: PANTOPRAZOLE SODIUM
     Dosage: UNK, ONCE A DAY
     Route: 065
     Dates: start: 20201019
  40. PANTOPRAZOLE SODIUM [Suspect]
     Active Substance: PANTOPRAZOLE SODIUM
     Dosage: UNK, ONCE A DAY
     Route: 065
     Dates: start: 20201020
  41. PANTOPRAZOLE SODIUM [Suspect]
     Active Substance: PANTOPRAZOLE SODIUM
     Dosage: UNK, ONCE A DAY
     Route: 065
     Dates: start: 20201021
  42. VALSARTAN [Suspect]
     Active Substance: VALSARTAN
     Indication: Hypertension
     Dosage: 320 MILLIGRAM
     Route: 048
  43. VALSARTAN [Suspect]
     Active Substance: VALSARTAN
     Dosage: 100 MILLIGRAM, ONCE A DAY
     Route: 048
     Dates: start: 20190910
  44. VALSARTAN [Suspect]
     Active Substance: VALSARTAN
     Dosage: 100 MILLIGRAM, ONCE A DAY
     Route: 048
     Dates: start: 20190915
  45. VALSARTAN [Suspect]
     Active Substance: VALSARTAN
     Dosage: 8 MILLIGRAM, ONCE A DAY
     Route: 048
     Dates: start: 20190915
  46. VALSARTAN [Suspect]
     Active Substance: VALSARTAN
     Indication: Product used for unknown indication
     Dosage: (0.5-0-0:MIN DOSE FREQUENCY AND 1-0-0: MAX DOSE FREQUENCY)
     Route: 065
     Dates: start: 20180102, end: 20180118
  47. VALSARTAN [Suspect]
     Active Substance: VALSARTAN
     Indication: Product used for unknown indication
     Dosage: UNK, ONCE A DAY
     Route: 065
     Dates: start: 20201018
  48. VALSARTAN [Suspect]
     Active Substance: VALSARTAN
     Dosage: UNK, ONCE A DAY
     Route: 065
     Dates: start: 20201016
  49. VALSARTAN [Suspect]
     Active Substance: VALSARTAN
     Dosage: UNK, ONCE A DAY
     Route: 065
     Dates: start: 20201020
  50. VALSARTAN [Suspect]
     Active Substance: VALSARTAN
     Dosage: UNK, ONCE A DAY
     Route: 065
     Dates: start: 20201019
  51. VALSARTAN [Suspect]
     Active Substance: VALSARTAN
     Dosage: UNK, ONCE A DAY
     Route: 065
     Dates: start: 20201017
  52. VALSARTAN [Suspect]
     Active Substance: VALSARTAN
     Dosage: UNK, ONCE A DAY
     Route: 065
     Dates: start: 20201021
  53. VALSARTAN [Suspect]
     Active Substance: VALSARTAN
     Dosage: UNK, ONCE A DAY
     Route: 065
     Dates: start: 20201017
  54. ZOPICLONE [Suspect]
     Active Substance: ZOPICLONE
     Indication: Product used for unknown indication
     Dosage: UNK, ONCE A DAY
     Route: 065
     Dates: start: 20180110, end: 20180116
  55. ASPIRIN [Suspect]
     Active Substance: ASPIRIN
     Indication: Product used for unknown indication
     Dosage: UNK, ONCE A DAY
     Route: 065
     Dates: start: 20180102, end: 20180118
  56. ASPIRIN [Suspect]
     Active Substance: ASPIRIN
     Dosage: UNK, ONCE A DAY
     Route: 065
     Dates: start: 20190911
  57. VALERIAN [Suspect]
     Active Substance: VALERIAN
     Indication: Product used for unknown indication
     Dosage: UNK
     Route: 065
     Dates: start: 20201017
  58. VALERIAN [Suspect]
     Active Substance: VALERIAN
     Dosage: UNK
     Route: 065
     Dates: start: 20201018
  59. FERROUS GLUCONATE [Suspect]
     Active Substance: FERROUS GLUCONATE
     Indication: Product used for unknown indication
     Dosage: UNK, ONCE A DAY
     Route: 065
     Dates: start: 20180110, end: 20181017
  60. FOLIC ACID [Suspect]
     Active Substance: FOLIC ACID
     Indication: Product used for unknown indication
     Dosage: UNK, ONCE A DAY
     Route: 065
     Dates: start: 20201019
  61. RANEXA [Suspect]
     Active Substance: RANOLAZINE
     Indication: Product used for unknown indication
     Dosage: UNK, TWO TIMES A DAY
     Route: 065
     Dates: start: 20180102, end: 20180118
  62. SPIRONOLACTONE [Suspect]
     Active Substance: SPIRONOLACTONE
     Indication: Product used for unknown indication
     Dosage: UNK
     Route: 065
     Dates: start: 20201016
  63. TORSEMIDE [Suspect]
     Active Substance: TORSEMIDE
     Indication: Product used for unknown indication
     Dosage: UNK, ONCE A DAY
     Route: 065
     Dates: start: 20180110, end: 20180118
  64. TORSEMIDE [Suspect]
     Active Substance: TORSEMIDE
     Dosage: UNK, ONCE A DAY
     Route: 065
     Dates: start: 20201016
  65. TORSEMIDE [Suspect]
     Active Substance: TORSEMIDE
     Dosage: UNK, ONCE A DAY
     Route: 065
     Dates: start: 20201017
  66. TORSEMIDE [Suspect]
     Active Substance: TORSEMIDE
     Dosage: UNK, ONCE A DAY
     Route: 065
     Dates: start: 20201018
  67. TORSEMIDE [Suspect]
     Active Substance: TORSEMIDE
     Dosage: UNK, ONCE A DAY
     Route: 065
     Dates: start: 20201019
  68. TORSEMIDE [Suspect]
     Active Substance: TORSEMIDE
     Dosage: UNK, ONCE A DAY
     Route: 065
     Dates: start: 20201020
  69. TORSEMIDE [Suspect]
     Active Substance: TORSEMIDE
     Dosage: UNK, ONCE A DAY
     Route: 065
     Dates: start: 20201021
  70. VALSARTAN [Suspect]
     Active Substance: VALSARTAN
     Indication: Hypertension
     Dosage: 320 MILLIGRAM, ONCE A DAY
     Route: 065
     Dates: start: 20160419
  71. VALSARTAN [Suspect]
     Active Substance: VALSARTAN
     Dosage: 320 MILLIGRAM, ONCE A DAY
     Route: 065
  72. VALSARTAN [Suspect]
     Active Substance: VALSARTAN
     Dosage: 320 MILLIGRAM, ONCE A DAY
     Route: 065
     Dates: start: 20160716
  73. VALSARTAN [Suspect]
     Active Substance: VALSARTAN
     Dosage: 320 MILLIGRAM, ONCE A DAY
     Route: 065
     Dates: start: 20161103
  74. VALSARTAN [Suspect]
     Active Substance: VALSARTAN
     Dosage: 320 MILLIGRAM, ONCE A DAY
     Route: 065
     Dates: start: 20170303
  75. VALSARTAN [Suspect]
     Active Substance: VALSARTAN
     Dosage: 320 MILLIGRAM, ONCE A DAY
     Route: 065
     Dates: start: 20170614
  76. VALSARTAN [Suspect]
     Active Substance: VALSARTAN
     Dosage: 320 MILLIGRAM, ONCE A DAY
     Route: 065
     Dates: start: 20170914
  77. VALSARTAN [Suspect]
     Active Substance: VALSARTAN
     Dosage: 320 MILLIGRAM, ONCE A DAY
     Route: 065
     Dates: start: 20171103
  78. XARELTO [Suspect]
     Active Substance: RIVAROXABAN
     Indication: Product used for unknown indication
     Dosage: UNK, ONCE A DAY
     Route: 065
     Dates: start: 20190910, end: 20190912
  79. XARELTO [Suspect]
     Active Substance: RIVAROXABAN
     Dosage: UNK, ONCE A DAY
     Route: 065
     Dates: start: 20190914, end: 20190919
  80. XARELTO [Suspect]
     Active Substance: RIVAROXABAN
     Dosage: UNK, ONCE A DAY
     Route: 065
     Dates: start: 20201016
  81. BISOPROLOL [Concomitant]
     Active Substance: BISOPROLOL
     Indication: Product used for unknown indication
     Dosage: 1/2-0-1
     Route: 065
     Dates: start: 20190910
  82. POTASSIUM CHLORIDE [Concomitant]
     Active Substance: POTASSIUM CHLORIDE
     Indication: Product used for unknown indication
     Dosage: 1-0-1
     Route: 065
     Dates: start: 20190916
  83. RANEXA [Concomitant]
     Active Substance: RANOLAZINE
     Indication: Product used for unknown indication
     Dosage: UNK, ONCE A DAY
     Route: 065
     Dates: start: 20190910, end: 20190915
  84. RANEXA [Concomitant]
     Active Substance: RANOLAZINE
     Dosage: UNK, ONCE A DAY
     Route: 065
     Dates: start: 20190916
  85. CANDESARTAN [Concomitant]
     Active Substance: CANDESARTAN
     Indication: Product used for unknown indication
     Dosage: 1-0-0
     Route: 065
     Dates: start: 20190917
  86. FOLIC ACID [Concomitant]
     Active Substance: FOLIC ACID
     Indication: Product used for unknown indication
     Dosage: UNK, ONCE A DAY
     Route: 065
     Dates: start: 20190917
  87. FUROSEMIDE [Concomitant]
     Active Substance: FUROSEMIDE
     Indication: Product used for unknown indication
     Dosage: 40-40-0 MG
     Route: 042
     Dates: start: 20190910, end: 20190916
  88. FUROSEMIDE [Concomitant]
     Active Substance: FUROSEMIDE
     Dosage: 1-1/2-0
     Route: 065
     Dates: start: 20190917
  89. FOLIC ACID [Concomitant]
     Active Substance: FOLIC ACID
     Indication: Product used for unknown indication
     Dosage: UNK, ONCE A DAY
     Route: 065
     Dates: start: 20190910
  90. MELPERONE [Concomitant]
     Active Substance: MELPERONE
     Indication: Product used for unknown indication
     Dosage: 0-0-0-1
     Route: 065
     Dates: start: 20190910
  91. IRON [Concomitant]
     Active Substance: IRON
     Indication: Product used for unknown indication
     Dosage: PAUSED
     Route: 065
     Dates: start: 20190910
  92. MELPERONE [Concomitant]
     Active Substance: MELPERONE
     Indication: Product used for unknown indication
     Dosage: UNK, ONCE A DAY (0-0-0-2)
     Route: 065
     Dates: start: 20190917
  93. PLAVIX [Concomitant]
     Active Substance: CLOPIDOGREL BISULFATE
     Indication: Product used for unknown indication
     Dosage: UNK, ONCE A DAY
     Route: 065
     Dates: start: 20190914
  94. VALSARTAN [Suspect]
     Active Substance: VALSARTAN
     Indication: Hypertension
     Dosage: 320 MILLIGRAM, ONCE A DAY
     Route: 048
     Dates: start: 20160419
  95. VALSARTAN [Suspect]
     Active Substance: VALSARTAN
     Dosage: 320 MILLIGRAM, ONCE A DAY
     Route: 048
     Dates: start: 20161103
  96. VALSARTAN [Suspect]
     Active Substance: VALSARTAN
     Dosage: 320 MILLIGRAM, ONCE A DAY
     Route: 048
     Dates: start: 20170303
  97. VALSARTAN [Suspect]
     Active Substance: VALSARTAN
     Dosage: 320 MILLIGRAM, ONCE A DAY
     Route: 048
     Dates: start: 20171103
  98. VALSARTAN [Suspect]
     Active Substance: VALSARTAN
     Dosage: 320 MILLIGRAM, ONCE A DAY
     Route: 048
     Dates: start: 20160716
  99. VALSARTAN [Suspect]
     Active Substance: VALSARTAN
     Dosage: 320 MILLIGRAM, ONCE A DAY
     Route: 048
     Dates: start: 20170614
  100. VALSARTAN [Suspect]
     Active Substance: VALSARTAN
     Dosage: 320 MILLIGRAM, ONCE A DAY
     Route: 048
     Dates: start: 20170914

REACTIONS (17)
  - Anaemia [Unknown]
  - Pallor [Unknown]
  - Mental impairment [Unknown]
  - Anxiety disorder [Unknown]
  - Chronic kidney disease [Unknown]
  - Fear of disease [Unknown]
  - Sleep disorder [Unknown]
  - Hyperhidrosis [Unknown]
  - Dyspnoea [Not Recovered/Not Resolved]
  - Impaired quality of life [Unknown]
  - Nightmare [Unknown]
  - Fatigue [Unknown]
  - Nervousness [Unknown]
  - Restlessness [Unknown]
  - Rectal polyp [Unknown]
  - Stress [Unknown]
  - Depression [Unknown]
